FAERS Safety Report 25493936 (Version 1)
Quarter: 2025Q2

REPORT INFORMATION
  Report Type: Spontaneous
  Country: US (occurrence: US)
  Receive Date: 20250630
  Receipt Date: 20250630
  Transmission Date: 20250717
  Serious: No
  Sender: GUERBET
  Company Number: US-GUERBET / LLC-US-20250079

PATIENT
  Age: 47 Year
  Sex: Female
  Weight: 128.3 kg

DRUGS (2)
  1. ELUCIREM [Suspect]
     Active Substance: GADOPICLENOL
     Indication: Pituitary scan
     Route: 042
     Dates: start: 20250408, end: 20250408
  2. ELUCIREM [Suspect]
     Active Substance: GADOPICLENOL
     Route: 042
     Dates: start: 20250408, end: 20250408

REACTIONS (2)
  - Hypersensitivity [Recovered/Resolved]
  - Maternal exposure during breast feeding [Recovered/Resolved]

NARRATIVE: CASE EVENT DATE: 20250408
